FAERS Safety Report 11273015 (Version 1)
Quarter: 2015Q3

REPORT INFORMATION
  Report Type: Spontaneous
  Country: PT (occurrence: PT)
  Receive Date: 20150715
  Receipt Date: 20150715
  Transmission Date: 20151125
  Serious: Yes (Other)
  Sender: FDA-Public Use
  Company Number: PT-ABBVIE-15K-130-1425159-00

PATIENT
  Age: 39 Year
  Sex: Male

DRUGS (1)
  1. ADALIMUMAB [Suspect]
     Active Substance: ADALIMUMAB
     Indication: ANKYLOSING SPONDYLITIS
     Route: 065

REACTIONS (2)
  - Multifocal motor neuropathy [Recovered/Resolved]
  - Muscular weakness [Recovered/Resolved]
